FAERS Safety Report 5210955-3 (Version None)
Quarter: 2006Q4

REPORT INFORMATION
  Report Type: 
  Country: None (occurrence: None)
  Receive Date: 20061114
  Receipt Date: 20060807
  Transmission Date: 20070319
  Serious: Yes (Other)
  Sender: FDA-Public Use
  Company Number: ALK_0010_2006

PATIENT
  Age: 52 Year
  Sex: Female

DRUGS (6)
  1. VIVITROL [Suspect]
     Indication: ALCOHOLISM
     Dosage: 380 MG QW; IM
     Route: 030
     Dates: start: 20060727
  2. ALLEGRA [Concomitant]
  3. ALBUTEROL [Concomitant]
  4. LEXAPRO [Concomitant]
  5. NORVASC [Concomitant]
  6. SUPPLEMENTAL IRON [Concomitant]

REACTIONS (2)
  - CRYING [None]
  - DEPRESSED MOOD [None]
